FAERS Safety Report 12391699 (Version 3)
Quarter: 2016Q2

REPORT INFORMATION
  Report Type: Spontaneous
  Country: JP (occurrence: JP)
  Receive Date: 20160522
  Receipt Date: 20160622
  Transmission Date: 20160815
  Serious: Yes (Death, Hospitalization, Other)
  Sender: FDA-Public Use
  Company Number: PHJP2016JP012733

PATIENT
  Age: 56 Year
  Sex: Female

DRUGS (2)
  1. COSENTYX [Suspect]
     Active Substance: SECUKINUMAB
     Dosage: 300 MG, 4W
     Route: 058
     Dates: start: 20160331, end: 20160428
  2. COSENTYX [Suspect]
     Active Substance: SECUKINUMAB
     Indication: PUSTULAR PSORIASIS
     Dosage: 300 MG, QW
     Route: 058
     Dates: start: 20160204, end: 20160331

REACTIONS (4)
  - Adrenal insufficiency [Unknown]
  - Bacterial infection [Fatal]
  - Rash [Unknown]
  - Sepsis [Fatal]

NARRATIVE: CASE EVENT DATE: 20160510
